FAERS Safety Report 21678867 (Version 1)
Quarter: 2022Q4

REPORT INFORMATION
  Report Type: Spontaneous
  Country: US (occurrence: None)
  Receive Date: 20221204
  Receipt Date: 20221204
  Transmission Date: 20230112
  Serious: No
  Sender: FDA-Public Use
  Company Number: 2022A372857

PATIENT
  Age: 71 Year
  Sex: Male
  Weight: 93 kg

DRUGS (1)
  1. BYETTA [Suspect]
     Active Substance: EXENATIDE
     Indication: Diabetes mellitus
     Dosage: 250MCG/2.4ML TWICE A DAY, MORNING AND NIGHT, BEFORE MEALS
     Route: 058
     Dates: start: 2006

REACTIONS (2)
  - Hypoacusis [Unknown]
  - Device issue [Unknown]

NARRATIVE: CASE EVENT DATE: 20170101
